FAERS Safety Report 11905619 (Version 1)
Quarter: 2016Q1

REPORT INFORMATION
  Report Type: Spontaneous
  Country: US (occurrence: None)
  Receive Date: 20160108
  Receipt Date: 20160108
  Transmission Date: 20160526
  Serious: Yes (Hospitalization)
  Sender: FDA-Public Use
  Company Number: None

PATIENT
  Age: 73 Year
  Sex: Female
  Weight: 68.58 kg

DRUGS (1)
  1. OPEN BIOME FECAL MICROBIOTA PREPARATION [Suspect]
     Active Substance: FECAL MICROBIOTA
     Indication: CLOSTRIDIUM DIFFICILE COLITIS
     Dosage: 250 CC?1X?VIA COLONOSCOPY
     Dates: start: 20151217

REACTIONS (2)
  - Pyrexia [None]
  - Postoperative fever [None]

NARRATIVE: CASE EVENT DATE: 20151217
